FAERS Safety Report 4364434-6 (Version None)
Quarter: 2004Q2

REPORT INFORMATION
  Report Type: 
  Country: None (occurrence: None)
  Receive Date: 20040525
  Receipt Date: 20040330
  Transmission Date: 20050107
  Serious: Yes (Other)
  Sender: FDA-Public Use
  Company Number: US-GLAXOSMITHKLINE-A0505117A

PATIENT
  Age: 65 Year
  Sex: Female
  Weight: 88.2 kg

DRUGS (5)
  1. VALTREX [Suspect]
     Dosage: 500MG PER DAY
     Route: 048
     Dates: start: 20040326, end: 20040327
  2. RENAGEL [Concomitant]
     Route: 048
  3. DIATX [Concomitant]
     Dosage: 1TAB PER DAY
     Route: 048
  4. SODIUM BICARBONATE [Concomitant]
     Route: 048
  5. IRON [Concomitant]
     Dosage: 150MG TWICE PER DAY
     Route: 048

REACTIONS (6)
  - DIZZINESS [None]
  - DYSARTHRIA [None]
  - HALLUCINATION [None]
  - SENSATION OF HEAVINESS [None]
  - VISION BLURRED [None]
  - VISUAL DISTURBANCE [None]
